FAERS Safety Report 6998242-4 (Version None)
Quarter: 2010Q3

REPORT INFORMATION
  Report Type: 
  Country: None (occurrence: None)
  Receive Date: 20100920
  Receipt Date: 20100303
  Transmission Date: 20110219
  Serious: Yes (Other)
  Sender: FDA-Public Use
  Company Number: US-ASTRAZENECA-2009UW03146

PATIENT
  Age: 620 Month
  Sex: Female
  Weight: 146.5 kg

DRUGS (8)
  1. SEROQUEL [Suspect]
     Indication: MANIA
     Route: 048
     Dates: start: 19980101, end: 20060101
  2. RISPERDAL [Concomitant]
     Dates: start: 20040101
  3. ZYPREXA/SYMBYAX [Concomitant]
     Dates: start: 20051001
  4. LITHIUM CARBONATE [Concomitant]
     Dosage: 900MG-1200MG/DAY DOSE VARIES
     Dates: start: 20040101
  5. PAROXETINE HCL [Concomitant]
     Dates: start: 20050101
  6. LORAZEPAM [Concomitant]
     Dates: start: 20040101, end: 20070101
  7. ATENOLOL [Concomitant]
     Dates: start: 20090101
  8. LITHIUM CARBONATE [Concomitant]
     Dates: start: 20090101

REACTIONS (2)
  - PANCREATITIS [None]
  - TYPE 2 DIABETES MELLITUS [None]
